FAERS Safety Report 6041046-X (Version None)
Quarter: 2009Q1

REPORT INFORMATION
  Report Type: 
  Country: None (occurrence: None)
  Receive Date: 20090116
  Receipt Date: 20080725
  Transmission Date: 20090719
  Serious: No
  Sender: FDA-Public Use
  Company Number: US-BRISTOL-MYERS SQUIBB COMPANY-14288302

PATIENT

DRUGS (1)
  1. ABILIFY [Suspect]
     Dosage: HAS TO BE GIVEN INTRAMUSCULARLY.
     Route: 042

REACTIONS (1)
  - MEDICATION ERROR [None]
